FAERS Safety Report 19640073 (Version 1)
Quarter: 2021Q3

REPORT INFORMATION
  Report Type: Spontaneous
  Country: CN (occurrence: CN)
  Receive Date: 20210730
  Receipt Date: 20210730
  Transmission Date: 20211014
  Serious: Yes (Other)
  Sender: FDA-Public Use
  Company Number: CN-BLUEPRINT MEDICINES CORPORATION-SO-CN-2021-001160

PATIENT
  Age: 61 Year
  Sex: Male

DRUGS (1)
  1. AYVAKIT [Suspect]
     Active Substance: AVAPRITINIB
     Indication: GASTROINTESTINAL STROMAL TUMOUR
     Route: 048
     Dates: start: 20210202

REACTIONS (9)
  - Abdominal pain [Unknown]
  - Frequent bowel movements [Unknown]
  - Platelet count decreased [Unknown]
  - Oedema [Unknown]
  - Alopecia [Unknown]
  - Asthenia [Unknown]
  - Metastases to liver [Unknown]
  - Hair colour changes [Unknown]
  - Swelling face [Unknown]
